FAERS Safety Report 7260111-2 (Version None)
Quarter: 2011Q1

REPORT INFORMATION
  Report Type: 
  Country: None (occurrence: None)
  Receive Date: 20110130
  Receipt Date: 20100902
  Transmission Date: 20110831
  Serious: No
  Sender: FDA-Public Use
  Company Number: US-ABBOTT-10P-163-0669661-00

PATIENT
  Sex: Male
  Weight: 64.014 kg

DRUGS (2)
  1. HUMIRA [Suspect]
     Indication: CROHN'S DISEASE
     Route: 058
     Dates: start: 20091001, end: 20100603
  2. HUMIRA [Suspect]
     Route: 058

REACTIONS (2)
  - CLOSTRIDIAL INFECTION [None]
  - HERPES ZOSTER [None]
